FAERS Safety Report 8052794-4 (Version None)
Quarter: 2012Q1

REPORT INFORMATION
  Report Type: 
  Country: None (occurrence: None)
  Receive Date: 20120118
  Receipt Date: 20120116
  Transmission Date: 20120608
  Serious: Yes (Other)
  Sender: FDA-Public Use
  Company Number: PHEH2012US001464

PATIENT
  Sex: Male

DRUGS (24)
  1. DIFLUPREDNATE [Concomitant]
  2. DORZOLAMIDE HCL AND TIMOLOL MALEATE [Concomitant]
  3. TASIGNA [Suspect]
     Dosage: 400 MG, QD
     Route: 048
  4. ALPRAZOLAM [Concomitant]
  5. CALCIUM [Concomitant]
  6. ASPIRIN [Concomitant]
  7. GABAPENTIN [Concomitant]
  8. OMEPRAZOLE [Concomitant]
  9. POLYETHYLENE GLYCOL [Concomitant]
  10. TAMSULOSIN HCL [Concomitant]
  11. GENTAMICIN [Concomitant]
  12. PROCHLORPERAZINE [Concomitant]
  13. IBUPROFEN [Concomitant]
  14. FUROSEMIDE [Concomitant]
  15. GENTEAL [Concomitant]
  16. GUAIFENESIN [Concomitant]
  17. ACETAMINOPHEN [Concomitant]
  18. DOC-Q-LACE [Concomitant]
  19. ISOSORBIDE DINITRATE [Concomitant]
  20. ARTIFICIAL TEARS [Concomitant]
  21. DILTIAZEM HCL [Concomitant]
  22. LUMIGAN [Concomitant]
  23. METHIMAZOLE [Concomitant]
  24. LISINOPRIL [Concomitant]

REACTIONS (7)
  - GLAUCOMA [None]
  - GASTROOESOPHAGEAL REFLUX DISEASE [None]
  - BENIGN PROSTATIC HYPERPLASIA [None]
  - DEPRESSION [None]
  - ASTHENIA [None]
  - HYPERTENSION [None]
  - HYPOTHYROIDISM [None]
